FAERS Safety Report 25085603 (Version 1)
Quarter: 2025Q1

REPORT INFORMATION
  Report Type: Spontaneous
  Country: BR (occurrence: None)
  Receive Date: 20250317
  Receipt Date: 20250317
  Transmission Date: 20250409
  Serious: Yes (Death, Hospitalization, Other)
  Sender: INCYTE
  Company Number: BR-INCYTE CORPORATION-2025IN002875

PATIENT
  Age: 89 Year

DRUGS (1)
  1. TAFASITAMAB [Suspect]
     Active Substance: TAFASITAMAB
     Indication: Diffuse large B-cell lymphoma

REACTIONS (1)
  - Disease progression [Fatal]
